FAERS Safety Report 5775197-1 (Version None)
Quarter: 2008Q2

REPORT INFORMATION
  Report Type: 
  Country: None (occurrence: None)
  Receive Date: 20080617
  Receipt Date: 20080613
  Transmission Date: 20081010
  Serious: Yes (Disabling)
  Sender: FDA-Public Use
  Company Number: A0733242A

PATIENT
  Age: 40 Year
  Sex: Female
  Weight: 49 kg

DRUGS (1)
  1. ZOVIRAX [Suspect]
     Indication: ORAL HERPES
     Dates: start: 20080605, end: 20080610

REACTIONS (4)
  - PRURITUS [None]
  - PYREXIA [None]
  - RASH [None]
  - WOUND [None]
